FAERS Safety Report 25037961 (Version 2)
Quarter: 2025Q3

REPORT INFORMATION
  Report Type: Spontaneous
  Country: JP (occurrence: JP)
  Receive Date: 20250304
  Receipt Date: 20250922
  Transmission Date: 20251021
  Serious: Yes (Hospitalization)
  Sender: EISAI
  Company Number: JP-Eisai-202415681_LEN_P_1

PATIENT
  Age: 60 Year
  Sex: Female

DRUGS (2)
  1. LENVIMA [Suspect]
     Active Substance: LENVATINIB
     Indication: Thyroid cancer
     Route: 048
     Dates: start: 20231011, end: 20241225
  2. LENVIMA [Suspect]
     Active Substance: LENVATINIB
     Route: 048

REACTIONS (1)
  - Small intestinal haemorrhage [Recovered/Resolved]

NARRATIVE: CASE EVENT DATE: 20241225
